FAERS Safety Report 20676226 (Version 7)
Quarter: 2022Q2

REPORT INFORMATION
  Report Type: Report from Study
  Country: IL (occurrence: IL)
  Receive Date: 20220405
  Receipt Date: 20220629
  Transmission Date: 20220720
  Serious: Yes (Other)
  Sender: FDA-Public Use
  Company Number: IL-PFIZER INC-202200072087

PATIENT
  Age: 26 Year
  Sex: Female

DRUGS (2)
  1. SOMAVERT [Suspect]
     Active Substance: PEGVISOMANT
     Dosage: DAILY
     Route: 058
     Dates: start: 20220110, end: 20220607
  2. LANREOTIDE [Concomitant]
     Active Substance: LANREOTIDE
     Dosage: UNK, MONTHLY

REACTIONS (10)
  - Adenoma benign [Not Recovered/Not Resolved]
  - Arthralgia [Unknown]
  - Decreased appetite [Unknown]
  - Injection site pain [Unknown]
  - Injection site haemorrhage [Unknown]
  - Mental disorder [Unknown]
  - Visual pathway disorder [Unknown]
  - Fear of injection [Unknown]
  - Injection site nodule [Unknown]
  - Off label use [Unknown]

NARRATIVE: CASE EVENT DATE: 20220101
